FAERS Safety Report 4276220-6 (Version None)
Quarter: 2004Q1

REPORT INFORMATION
  Report Type: 
  Country: None (occurrence: None)
  Receive Date: 20040121
  Receipt Date: 20030616
  Transmission Date: 20041129
  Serious: No
  Sender: FDA-Public Use
  Company Number: US-GLAXOSMITHKLINE-A0412474A

PATIENT
  Age: 44 Year
  Sex: Male

DRUGS (6)
  1. ZIAGEN [Suspect]
     Indication: HIV INFECTION
     Dosage: 300MG TWICE PER DAY
     Route: 048
  2. ZERIT [Concomitant]
     Route: 065
  3. VIDEX EC [Concomitant]
     Route: 065
  4. BUSPAR [Concomitant]
     Route: 065
  5. ACURETIC [Concomitant]
     Route: 065
  6. ALLEGRA [Concomitant]
     Route: 065

REACTIONS (6)
  - COUGH [None]
  - HYPERTENSION [None]
  - INSOMNIA [None]
  - PHARYNGOLARYNGEAL PAIN [None]
  - THIRST [None]
  - THROAT LESION [None]
